FAERS Safety Report 7714611-9 (Version None)
Quarter: 2011Q3

REPORT INFORMATION
  Report Type: 
  Country: None (occurrence: None)
  Receive Date: 20110829
  Receipt Date: 20110825
  Transmission Date: 20111222
  Serious: No
  Sender: FDA-Public Use
  Company Number: US-PFIZER INC-2011199198

PATIENT
  Sex: Female
  Weight: 62.6 kg

DRUGS (11)
  1. HYDROCHLOROTHIAZIDE [Concomitant]
     Indication: FLUID RETENTION
     Dosage: 50 MG, DAILY
  2. PROZAC [Concomitant]
     Indication: DEPRESSION
     Dosage: 40 MG, 2X/DAY
  3. BUSPAR [Concomitant]
     Indication: ANXIETY
     Dosage: 5 MG, 2X/DAY
  4. LIPITOR [Suspect]
     Dosage: 20 MG, DAILY
     Route: 048
     Dates: start: 20110101, end: 20110101
  5. PROVENTIL [Concomitant]
     Indication: EMPHYSEMA
     Dosage: UNK, AS NEEDED
  6. ADVAIR DISKUS 100/50 [Concomitant]
     Indication: LUNG DISORDER
     Dosage: 50 MG, 2X/DAY
  7. TRAZODONE [Concomitant]
     Indication: SLEEP DISORDER
     Dosage: 150 MG, DAILY
  8. PROVENTIL [Concomitant]
     Indication: CHRONIC OBSTRUCTIVE PULMONARY DISEASE
  9. FOSAMAX [Concomitant]
     Indication: BONE DISORDER
     Dosage: 70 MG, WEEKLY
  10. NEURONTIN [Concomitant]
     Dosage: 300 MG, 2X/DAY
  11. NEXIUM [Concomitant]
     Indication: DYSPEPSIA
     Dosage: 20 MG, 2X/DAY

REACTIONS (1)
  - NAUSEA [None]
